FAERS Safety Report 6161238-9 (Version None)
Quarter: 2009Q2

REPORT INFORMATION
  Report Type: 
  Country: None (occurrence: None)
  Receive Date: 20090420
  Receipt Date: 20090420
  Transmission Date: 20091009
  Serious: Yes (Hospitalization)
  Sender: FDA-Public Use
  Company Number: None

PATIENT
  Sex: Female
  Weight: 120.6568 kg

DRUGS (1)
  1. WINRHO [Suspect]
     Indication: IDIOPATHIC THROMBOCYTOPENIC PURPURA
     Dosage: ONE TIME IV
     Route: 042
     Dates: start: 20081007, end: 20081007

REACTIONS (12)
  - APPARENT DEATH [None]
  - ARTHRALGIA [None]
  - CHILLS [None]
  - COMMUNICATION DISORDER [None]
  - DRUG HYPERSENSITIVITY [None]
  - FLUSHING [None]
  - HAEMOLYSIS [None]
  - HYPERHIDROSIS [None]
  - INFUSION RELATED REACTION [None]
  - PAIN [None]
  - PLATELET COUNT DECREASED [None]
  - PYREXIA [None]
